FAERS Safety Report 10258325 (Version 1)
Quarter: 2014Q2

REPORT INFORMATION
  Report Type: Spontaneous
  Country: US (occurrence: None)
  Receive Date: 20140623
  Receipt Date: 20140623
  Transmission Date: 20141212
  Serious: No
  Sender: FDA-Public Use
  Company Number: None

PATIENT
  Age: 85 Year
  Sex: Male

DRUGS (1)
  1. TIKOSYN [Suspect]
     Indication: OPEN ANGLE GLAUCOMA
     Route: 048
     Dates: start: 20110531, end: 20140605

REACTIONS (1)
  - Cardiac arrest [None]
